FAERS Safety Report 7379765-5 (Version None)
Quarter: 2011Q1

REPORT INFORMATION
  Report Type: 
  Country: None (occurrence: None)
  Receive Date: 20110318
  Receipt Date: 20110303
  Transmission Date: 20110831
  Serious: Yes (Other)
  Sender: FDA-Public Use
  Company Number: US-DEXPHARM-20110329

PATIENT
  Sex: Male
  Weight: 79 kg

DRUGS (5)
  1. RANITIDINE [Concomitant]
  2. ACETYLSALICYLIC ACID SRT [Concomitant]
  3. TAMSULOSIN HCL [Concomitant]
  4. OMEPRAZOLE [Suspect]
     Indication: GASTROOESOPHAGEAL REFLUX DISEASE
     Dosage: 20 MG ONCE A DAY, ORAL
     Route: 048
     Dates: start: 20110301, end: 20110303
  5. CARVEDILOL [Concomitant]

REACTIONS (3)
  - DYSPNOEA [None]
  - DIZZINESS [None]
  - CONDITION AGGRAVATED [None]
